FAERS Safety Report 25169634 (Version 1)
Quarter: 2025Q2

REPORT INFORMATION
  Report Type: Spontaneous
  Country: PT (occurrence: PT)
  Receive Date: 20250407
  Receipt Date: 20250407
  Transmission Date: 20250716
  Serious: Yes (Other)
  Sender: BRISTOL MYERS SQUIBB
  Company Number: PT-BRISTOL-MYERS SQUIBB COMPANY-2025-047430

PATIENT

DRUGS (1)
  1. MAVACAMTEN [Suspect]
     Active Substance: MAVACAMTEN
     Indication: Product used for unknown indication

REACTIONS (2)
  - Atrial fibrillation [Unknown]
  - Ejection fraction decreased [Unknown]
